FAERS Safety Report 6640212-X (Version None)
Quarter: 2010Q1

REPORT INFORMATION
  Report Type: 
  Country: None (occurrence: None)
  Receive Date: 20100318
  Receipt Date: 20100308
  Transmission Date: 20100710
  Serious: Yes (Hospitalization, Other)
  Sender: FDA-Public Use
  Company Number: US-AMGEN-QUU364886

PATIENT
  Sex: Female

DRUGS (27)
  1. ENBREL [Suspect]
     Indication: PSORIATIC ARTHROPATHY
     Route: 058
     Dates: start: 20060822
  2. ENBREL [Suspect]
     Indication: PSORIASIS
  3. CALCIPOTRIENE [Concomitant]
  4. BETAMETHASONE [Concomitant]
  5. METFORMIN HYDROCHLORIDE [Concomitant]
  6. GLYBURIDE [Concomitant]
  7. CELEBREX [Concomitant]
  8. THEOPHYLLINE [Concomitant]
  9. ALTACE [Concomitant]
  10. TOPROL-XL [Concomitant]
  11. ASPIRIN [Concomitant]
  12. FERROUS SULFATE TAB [Concomitant]
  13. POTASSIUM CHLORIDE [Concomitant]
  14. TRICOR [Concomitant]
  15. LASIX [Concomitant]
  16. OXYCODONE HCL AND ACETAMINOPHEN [Concomitant]
  17. DIAZEPAM [Concomitant]
  18. CLOBETASOL PROPIONATE [Concomitant]
  19. VITAMIN B-12 [Concomitant]
  20. FISH OIL [Concomitant]
  21. LIPITOR [Concomitant]
  22. SINGULAIR [Concomitant]
  23. FOLIC ACID [Concomitant]
  24. LISINOPRIL [Concomitant]
  25. PLAVIX [Concomitant]
  26. BISOPROLOL [Concomitant]
  27. NORVASC [Concomitant]

REACTIONS (8)
  - DRY SKIN [None]
  - INJECTION SITE PAIN [None]
  - MYOCARDIAL INFARCTION [None]
  - PNEUMONIA [None]
  - PSORIASIS [None]
  - PSORIATIC ARTHROPATHY [None]
  - RENAL DISORDER [None]
  - THERAPEUTIC RESPONSE DECREASED [None]
